FAERS Safety Report 24417381 (Version 1)
Quarter: 2024Q4

REPORT INFORMATION
  Report Type: Spontaneous
  Country: US (occurrence: US)
  Receive Date: 20241009
  Receipt Date: 20241009
  Transmission Date: 20250114
  Serious: No
  Sender: INCYTE
  Company Number: US-INCYTE CORPORATION-2024IN010378

PATIENT

DRUGS (2)
  1. JAKAFI [Suspect]
     Active Substance: RUXOLITINIB
     Indication: Essential thrombocythaemia
     Dosage: TAKE 1 TABLET 5MG WITH 1 TABLET 10MG TWICE DAILY (15MG TOTAL)
     Route: 048
     Dates: start: 20240516
  2. JAKAFI [Suspect]
     Active Substance: RUXOLITINIB
     Dosage: TAKE 1 TABLET 5MG WITH 1 TABLET 10MG TWICE DAILY (15MG TOTAL)
     Route: 048
     Dates: start: 20240516

REACTIONS (2)
  - Product dose omission issue [Unknown]
  - Off label use [Unknown]

NARRATIVE: CASE EVENT DATE: 20240516
